FAERS Safety Report 4711180-2 (Version None)
Quarter: 2005Q3

REPORT INFORMATION
  Report Type: 
  Country: None (occurrence: None)
  Receive Date: 20050708
  Receipt Date: 20050623
  Transmission Date: 20060218
  Serious: Yes (Hospitalization)
  Sender: FDA-Public Use
  Company Number: 800122

PATIENT
  Age: 61 Year
  Sex: Female
  Weight: 46.1 kg

DRUGS (26)
  1. EXTRANEAL [Suspect]
     Indication: RENAL FAILURE CHRONIC
     Dosage: 1500 ML; EVERY DAY; IP
     Dates: start: 20040411
  2. DIANEAL FD4 ULTRABAG [Concomitant]
  3. CALCIUM CARBONATE [Concomitant]
  4. EPOGIN [Concomitant]
  5. NIFEDIPINE [Concomitant]
  6. ACECOL [Concomitant]
  7. AMLODIPINE BESYLATE [Concomitant]
  8. CHLORPHENIRAMINE MALEATE [Concomitant]
  9. MEILAX [Concomitant]
  10. SIMVASTATIN [Concomitant]
  11. LONMIEL [Concomitant]
  12. CALCIUM PANTOTHENATE [Concomitant]
  13. MARZULENE [Concomitant]
  14. FLUNITRAZEPAM [Concomitant]
  15. BROTIZOLAM [Concomitant]
  16. CALCIUM CARBONATE [Concomitant]
  17. ALOSENN [Concomitant]
  18. VALSARTAN [Concomitant]
  19. CALCITRIOL [Concomitant]
  20. DOXAZOSIN MESYLATE [Concomitant]
  21. NIFEDIPINE [Concomitant]
  22. FAMOTIDINE [Concomitant]
  23. WARAFARIN POTASSIUM [Concomitant]
  24. CALCIUM CARBONATE [Concomitant]
  25. EPOGEN [Concomitant]
  26. DIANEAL PD4 ULTRABAG [Concomitant]

REACTIONS (8)
  - BLOOD CHOLESTEROL DECREASED [None]
  - BLOOD PHOSPHORUS DECREASED [None]
  - BLOOD TRIGLYCERIDES DECREASED [None]
  - HAEMATOCRIT DECREASED [None]
  - HAEMODIALYSIS [None]
  - HAEMOGLOBIN DECREASED [None]
  - ILEUS PARALYTIC [None]
  - RED BLOOD CELL COUNT DECREASED [None]
